FAERS Safety Report 9658870 (Version 8)
Quarter: 2015Q1

REPORT INFORMATION
  Report Type: Spontaneous
  Country: CA (occurrence: CA)
  Receive Date: 20131030
  Receipt Date: 20150126
  Transmission Date: 20150721
  Serious: Yes (Other)
  Sender: FDA-Public Use
  Company Number: CA-ROCHE-1296323

PATIENT
  Age: 48 Year
  Sex: Male

DRUGS (4)
  1. XOLAIR [Suspect]
     Active Substance: OMALIZUMAB
     Indication: ASTHMA
     Route: 058
     Dates: start: 20121015
  2. XOLAIR [Suspect]
     Active Substance: OMALIZUMAB
     Route: 058
     Dates: start: 20140709
  3. XOLAIR [Suspect]
     Active Substance: OMALIZUMAB
     Route: 058
     Dates: start: 20130220
  4. XOLAIR [Suspect]
     Active Substance: OMALIZUMAB
     Route: 058
     Dates: start: 201303

REACTIONS (12)
  - Lung infection [Unknown]
  - Sputum discoloured [Unknown]
  - Pain of skin [Unknown]
  - Asthenia [Unknown]
  - Malaise [Unknown]
  - Fatigue [Recovering/Resolving]
  - Hypersomnia [Unknown]
  - Accident at work [Unknown]
  - Oropharyngeal pain [Recovering/Resolving]
  - Dizziness [Unknown]
  - Increased bronchial secretion [Unknown]
  - Insomnia [Unknown]

NARRATIVE: CASE EVENT DATE: 20130220
